FAERS Safety Report 23379477 (Version 2)
Quarter: 2025Q3

REPORT INFORMATION
  Report Type: Report from Study
  Country: GB (occurrence: GB)
  Receive Date: 20240108
  Receipt Date: 20250929
  Transmission Date: 20251021
  Serious: Yes (Hospitalization)
  Sender: SANDOZ
  Company Number: GB-002147023-NVSC2023GB138800

PATIENT
  Sex: Female

DRUGS (2)
  1. OMNITROPE [Suspect]
     Active Substance: SOMATROPIN
     Indication: Pituitary gonadotropin hyperfunction
     Dosage: 0.60 MG, QD
     Route: 058
     Dates: start: 20230613
  2. OMNITROPE [Suspect]
     Active Substance: SOMATROPIN
     Dosage: 0.80 MG, QD (15 MG/1.5 ML SOLUTION FOR INJECTION IN CARTRIDGE)
     Route: 058
     Dates: start: 20230613

REACTIONS (2)
  - Gastrointestinal disorder [Unknown]
  - Product dose omission issue [Unknown]
